FAERS Safety Report 12384347 (Version 1)
Quarter: 2016Q2

REPORT INFORMATION
  Report Type: Spontaneous
  Country: US (occurrence: None)
  Receive Date: 20160518
  Receipt Date: 20160518
  Transmission Date: 20160815
  Serious: Yes (Other)
  Sender: FDA-Public Use
  Company Number: None

PATIENT
  Age: 62 Year
  Sex: Male
  Weight: 65.77 kg

DRUGS (4)
  1. LETROZOLE 2.5MG [Suspect]
     Active Substance: LETROZOLE
     Indication: BLOOD TESTOSTERONE INCREASED
     Dosage: 1 PILL/WEEK TAKEN BY MOUTH
     Route: 048
     Dates: start: 20101025, end: 20160513
  2. PROBIOTICS [Concomitant]
     Active Substance: PROBIOTICS NOS
  3. DIGESTIVE ENZYME [Concomitant]
     Active Substance: UNSPECIFIED INGREDIENT
  4. VITAMINS [Concomitant]
     Active Substance: VITAMINS

REACTIONS (1)
  - Osteoporosis [None]

NARRATIVE: CASE EVENT DATE: 20160422
